FAERS Safety Report 7650950-8 (Version None)
Quarter: 2011Q3

REPORT INFORMATION
  Report Type: 
  Country: None (occurrence: None)
  Receive Date: 20110802
  Receipt Date: 20110727
  Transmission Date: 20111222
  Serious: Yes (Other)
  Sender: FDA-Public Use
  Company Number: GB-ROCHE-774764

PATIENT
  Sex: Female
  Weight: 70.2 kg

DRUGS (2)
  1. ACTEMRA [Suspect]
     Indication: JUVENILE ARTHRITIS
     Route: 042
     Dates: start: 20100824
  2. ACETAMINOPHEN [Concomitant]
     Dosage: PRN
     Route: 048

REACTIONS (1)
  - PSORIASIS [None]
